FAERS Safety Report 13020685 (Version 1)
Quarter: 2016Q4

REPORT INFORMATION
  Report Type: Spontaneous
  Country: FR (occurrence: FR)
  Receive Date: 20161212
  Receipt Date: 20161212
  Transmission Date: 20170207
  Serious: Yes (Life-Threatening, Hospitalization, Other)
  Sender: FDA-Public Use
  Company Number: FR-BAUSCH-BL-2016-031071

PATIENT
  Age: 40 Year
  Sex: Male

DRUGS (4)
  1. PREDNISOLONE. [Suspect]
     Active Substance: PREDNISOLONE
     Indication: PRODUCT USED FOR UNKNOWN INDICATION
     Dosage: MORNING
  2. AMOXICILLIN W/CLAVULANIC ACID [Concomitant]
     Active Substance: AMOXICILLIN\CLAVULANIC ACID
     Indication: PRODUCT USED FOR UNKNOWN INDICATION
     Dosage: 1 G/125 MG MORNING AND EVENING
     Route: 048
  3. PREDNISOLONE AND NAPHAZOLINE HYDROCHLORIDE [Suspect]
     Active Substance: NAPHAZOLINE HYDROCHLORIDE\PREDNISOLONE
     Indication: SINUSITIS
     Dosage: 10 SPRAYS A DAY FOR 3 DAYS
     Route: 065
  4. PARACETAMOL [Concomitant]
     Active Substance: ACETAMINOPHEN
     Indication: PRODUCT USED FOR UNKNOWN INDICATION

REACTIONS (7)
  - Cardiac failure acute [Recovered/Resolved]
  - Hypokalaemia [Unknown]
  - Hyperglycaemia [Unknown]
  - Malignant hypertension [Recovering/Resolving]
  - Overdose [Unknown]
  - Lymphopenia [Unknown]
  - Intentional product misuse [Unknown]
